FAERS Safety Report 19985456 (Version 1)
Quarter: 2021Q4

REPORT INFORMATION
  Report Type: Spontaneous
  Country: US (occurrence: US)
  Receive Date: 20211021
  Receipt Date: 20211021
  Transmission Date: 20220303
  Serious: No
  Sender: FDA-Public Use
  Company Number: US-ZOGENIX INTERNATIONAL LIMITED, A WHOLLY OWNED SUBSIDIARY OF ZOGENIX, INC.-2021ZX000684

PATIENT
  Age: 7 Year
  Sex: Male

DRUGS (4)
  1. FINTEPLA [Suspect]
     Active Substance: FENFLURAMINE
     Indication: Severe myoclonic epilepsy of infancy
     Route: 048
     Dates: start: 20210629, end: 202107
  2. FINTEPLA [Suspect]
     Active Substance: FENFLURAMINE
     Route: 048
     Dates: start: 202107, end: 20210815
  3. CANNABIDIOL\HERBALS [Concomitant]
     Active Substance: CANNABIDIOL\HERBALS
     Indication: Product used for unknown indication
     Dosage: RATIO 25:1
     Route: 065
  4. NATURE-THROID [Concomitant]
     Active Substance: THYROID, PORCINE
     Indication: Product used for unknown indication
     Route: 065

REACTIONS (10)
  - Hyperhidrosis [Not Recovered/Not Resolved]
  - Psychomotor hyperactivity [Unknown]
  - Muscle twitching [Unknown]
  - Gait disturbance [Not Recovered/Not Resolved]
  - Insomnia [Not Recovered/Not Resolved]
  - Seizure [Not Recovered/Not Resolved]
  - Seizure cluster [Not Recovered/Not Resolved]
  - Drooling [Not Recovered/Not Resolved]
  - Generalised tonic-clonic seizure [Not Recovered/Not Resolved]
  - Change in seizure presentation [Not Recovered/Not Resolved]
